FAERS Safety Report 25318229 (Version 2)
Quarter: 2025Q2

REPORT INFORMATION
  Report Type: Spontaneous
  Country: CN (occurrence: CN)
  Receive Date: 20250515
  Receipt Date: 20250519
  Transmission Date: 20250716
  Serious: Yes (Other)
  Sender: BAYER HEALTHCARE PHARMACEUTICALS INC.
  Company Number: CN-BAYER-2025A063514

PATIENT
  Age: 56 Year
  Sex: Female

DRUGS (2)
  1. GLUCOBAY [Suspect]
     Active Substance: ACARBOSE
     Indication: Carbohydrate tolerance decreased
     Dosage: 1 DF, BID
     Route: 048
     Dates: start: 202504, end: 202505
  2. GLUCOBAY [Suspect]
     Active Substance: ACARBOSE
     Indication: Blood glucose increased

REACTIONS (1)
  - Hypoglycaemia [Recovered/Resolved]

NARRATIVE: CASE EVENT DATE: 20250501
